FAERS Safety Report 9149847 (Version 1)
Quarter: 2013Q1

REPORT INFORMATION
  Report Type: Spontaneous
  Country: US (occurrence: US)
  Receive Date: 20130308
  Receipt Date: 20130308
  Transmission Date: 20140127
  Serious: No
  Sender: FDA-Public Use
  Company Number: US-ENDO PHARMACEUTICALS INC.-OPCR20120623

PATIENT
  Sex: Female
  Weight: 45.4 kg

DRUGS (3)
  1. OPANA ER 20MG [Suspect]
     Indication: INTERVERTEBRAL DISC PROTRUSION
     Route: 048
     Dates: start: 201203, end: 201204
  2. OPANA ER 20MG [Suspect]
     Indication: NERVE COMPRESSION
  3. OPANA ER 20MG [Suspect]
     Indication: PAIN

REACTIONS (1)
  - Medication residue present [Recovered/Resolved]
